FAERS Safety Report 8195713-2 (Version None)
Quarter: 2012Q1

REPORT INFORMATION
  Report Type: 
  Country: None (occurrence: None)
  Receive Date: 20120308
  Receipt Date: 20120301
  Transmission Date: 20120608
  Serious: Yes (Disabling)
  Sender: FDA-Public Use
  Company Number: FR-PFIZER INC-2012054721

PATIENT
  Age: 70 Year
  Sex: Female

DRUGS (6)
  1. DOMPERIDONE [Concomitant]
     Dosage: 3 DF/DAY
     Dates: start: 20060101
  2. SERTRALINE HYDROCHLORIDE [Concomitant]
     Dosage: 50 MG, 1X/DAY
     Dates: start: 20060101
  3. ACETAMINOPHEN [Concomitant]
     Dosage: 6 DF/DAY
     Dates: start: 20060101
  4. ZOPICLONE [Concomitant]
     Dosage: 1 DF, 1X/DAY
     Dates: start: 20060101
  5. CELEBREX [Suspect]
     Dosage: 200 MG, 1X/DAY
     Route: 048
     Dates: start: 20070101, end: 20110701
  6. AMITRIPTYLINE HCL [Concomitant]
     Dosage: 25 MG,PER DAY
     Dates: start: 20090101

REACTIONS (2)
  - THROMBOSIS [None]
  - BLINDNESS UNILATERAL [None]
